FAERS Safety Report 25375364 (Version 1)
Quarter: 2025Q2

REPORT INFORMATION
  Report Type: Report from Study
  Country: KR (occurrence: KR)
  Receive Date: 20250529
  Receipt Date: 20250529
  Transmission Date: 20250717
  Serious: Yes (Death)
  Sender: PFIZER
  Company Number: KR-PFIZER INC-202500109080

PATIENT
  Sex: Male

DRUGS (1)
  1. INLYTA [Suspect]
     Active Substance: AXITINIB
     Indication: Renal cancer
     Dates: start: 20240718, end: 20240726

REACTIONS (2)
  - Death [Fatal]
  - Drain placement [Unknown]

NARRATIVE: CASE EVENT DATE: 20240101
